FAERS Safety Report 17670323 (Version 1)
Quarter: 2020Q2

REPORT INFORMATION
  Report Type: Spontaneous
  Country: IT (occurrence: IT)
  Receive Date: 20200415
  Receipt Date: 20200415
  Transmission Date: 20200713
  Serious: Yes (Death, Other)
  Sender: FDA-Public Use
  Company Number: IT-MYLANLABS-2020M1037309

PATIENT
  Age: 53 Year
  Sex: Male

DRUGS (2)
  1. IMATINIB. [Suspect]
     Active Substance: IMATINIB MESYLATE
     Indication: GASTROINTESTINAL STROMAL TUMOUR
     Dosage: 800 MG, PER DAY
     Dates: start: 201603, end: 201710
  2. IMATINIB. [Suspect]
     Active Substance: IMATINIB MESYLATE
     Dosage: 400 MG, PER DAY
     Dates: start: 201511, end: 201603

REACTIONS (2)
  - Drug resistance [Fatal]
  - Neoplasm progression [Fatal]
